FAERS Safety Report 7980419-2 (Version None)
Quarter: 2011Q4

REPORT INFORMATION
  Report Type: 
  Country: None (occurrence: None)
  Receive Date: 20111214
  Receipt Date: 20111208
  Transmission Date: 20120403
  Serious: Yes (Hospitalization, Disabling)
  Sender: FDA-Public Use
  Company Number: US-GLAXOSMITHKLINE-A0858729A

PATIENT
  Age: 69 Year
  Sex: Female

DRUGS (1)
  1. AVANDIA [Suspect]
     Indication: DIABETES MELLITUS
     Dosage: 4MG PER DAY
     Route: 048
     Dates: start: 20040322, end: 20070711

REACTIONS (10)
  - ATRIOVENTRICULAR BLOCK COMPLETE [None]
  - ACUTE MYOCARDIAL INFARCTION [None]
  - CARDIAC TAMPONADE [None]
  - AMNESIA [None]
  - CARDIAC PACEMAKER INSERTION [None]
  - PARKINSONISM [None]
  - ARTERIOSCLEROSIS CORONARY ARTERY [None]
  - VENTRICLE RUPTURE [None]
  - FALL [None]
  - DEMENTIA [None]
